FAERS Safety Report 13824904 (Version 1)
Quarter: 2017Q3

REPORT INFORMATION
  Report Type: Report from Study
  Country: MX (occurrence: MX)
  Receive Date: 20170802
  Receipt Date: 20170802
  Transmission Date: 20171127
  Serious: Yes (Hospitalization)
  Sender: FDA-Public Use
  Company Number: PHHY2017MX111481

PATIENT
  Age: 9 Year
  Sex: Female
  Weight: 25.8 kg

DRUGS (4)
  1. FISOPRED [Concomitant]
     Active Substance: PREDNISOLONE 21-PHOSPHATE
     Indication: CORTISOL DECREASED
     Dosage: 2.5 ML (1ML IN THE MORNING AND 1.5 ML AT NIGHT)
     Route: 048
  2. LEVOTHYROXINE. [Concomitant]
     Active Substance: LEVOTHYROXINE
     Indication: HYPOTHYROIDISM
     Dosage: 50 UG, EVERY 24 HOURS
     Route: 048
  3. OMNITROPE [Suspect]
     Active Substance: SOMATROPIN
     Indication: SEPTO-OPTIC DYSPLASIA
  4. OMNITROPE [Suspect]
     Active Substance: SOMATROPIN
     Indication: GROWTH HORMONE DEFICIENCY
     Dosage: 1 MG, EVERY 24 HOURS
     Route: 058

REACTIONS (30)
  - Headache [Recovering/Resolving]
  - Blood urea increased [Unknown]
  - Bacterial test positive [Unknown]
  - Mean cell haemoglobin concentration [Unknown]
  - Red cell distribution width decreased [Unknown]
  - White blood cell disorder [Unknown]
  - Blood glucose decreased [Unknown]
  - Bilirubin conjugated increased [Unknown]
  - Lymphocyte count decreased [Unknown]
  - Vision blurred [Unknown]
  - Hypoglycaemia [Recovering/Resolving]
  - Nausea [Recovering/Resolving]
  - Blood creatinine decreased [Unknown]
  - Blood chloride decreased [Unknown]
  - Ketonuria [Unknown]
  - Neutrophil count increased [Unknown]
  - Blood alkaline phosphatase increased [Unknown]
  - Haematocrit decreased [Unknown]
  - Off label use [Not Recovered/Not Resolved]
  - Glucose urine present [Unknown]
  - Urinary tract infection [Recovering/Resolving]
  - Cytogenetic abnormality [Unknown]
  - Hyponatraemia [Unknown]
  - Blood glucose increased [Unknown]
  - Blood sodium decreased [Unknown]
  - Lymphocyte count increased [Unknown]
  - Seizure [Recovering/Resolving]
  - Acromegaly [Unknown]
  - Leukocyturia [Unknown]
  - White blood cell count [Unknown]

NARRATIVE: CASE EVENT DATE: 20170722
